FAERS Safety Report 9228619 (Version 2)
Quarter: 2013Q4

REPORT INFORMATION
  Report Type: Spontaneous
  Country: GB (occurrence: GB)
  Receive Date: 20130412
  Receipt Date: 20131203
  Transmission Date: 20140711
  Serious: Yes (Hospitalization)
  Sender: FDA-Public Use
  Company Number: GB-WATSON-2013-05954

PATIENT
  Age: 51 Year
  Sex: Female

DRUGS (2)
  1. CLARITHROMYCIN (UNKNOWN) [Suspect]
     Indication: LOCALISED INFECTION
     Dosage: 500 MG, TID
     Route: 048
     Dates: start: 20130228, end: 20130303
  2. CARBAMAZEPINE (UNKNOWN) [Suspect]
     Indication: EPILEPSY
     Dosage: 1000 MG, DAILY, 600 MG QAM, 400MG QPM
     Route: 048

REACTIONS (4)
  - Paraesthesia [Recovered/Resolved]
  - Gait disturbance [Recovered/Resolved]
  - Nausea [Recovered/Resolved]
  - Toxicity to various agents [Recovered/Resolved]
